FAERS Safety Report 10188721 (Version 1)
Quarter: 2014Q2

REPORT INFORMATION
  Report Type: Spontaneous
  Country: US (occurrence: US)
  Receive Date: 20140522
  Receipt Date: 20140522
  Transmission Date: 20141212
  Serious: No
  Sender: FDA-Public Use
  Company Number: US-SA-2014SA020853

PATIENT
  Age: 78 Year
  Sex: Female

DRUGS (2)
  1. LANTUS SOLOSTAR [Suspect]
     Indication: TYPE 2 DIABETES MELLITUS
     Dosage: PRODUCT STARTS SINCE 1-2 YEARS DOSE:25 UNIT(S)
     Route: 051
  2. SOLOSTAR [Concomitant]
     Dosage: PRODUCT STARTS SINCE 1-2 YEARS

REACTIONS (1)
  - Visual impairment [Unknown]
